FAERS Safety Report 4763183-X (Version None)
Quarter: 2005Q3

REPORT INFORMATION
  Report Type: 
  Country: None (occurrence: None)
  Receive Date: 20050902
  Receipt Date: 20050830
  Transmission Date: 20060218
  Serious: Yes (Death)
  Sender: FDA-Public Use
  Company Number: 2005-132017-NL

PATIENT
  Age: 45 Year
  Sex: Female

DRUGS (1)
  1. VECURONIUM BROMIDE [Suspect]

REACTIONS (1)
  - COMPLETED SUICIDE [None]
